FAERS Safety Report 14255198 (Version 1)
Quarter: 2017Q4

REPORT INFORMATION
  Report Type: Report from Study
  Country: US (occurrence: US)
  Receive Date: 20171206
  Receipt Date: 20171206
  Transmission Date: 20180321
  Serious: Yes (Other)
  Sender: FDA-Public Use
  Company Number: US-GILEAD-2017-0307907

PATIENT
  Age: 58 Year
  Sex: Female

DRUGS (2)
  1. ADCIRCA [Concomitant]
     Active Substance: TADALAFIL
  2. AMBRISENTAN [Suspect]
     Active Substance: AMBRISENTAN
     Indication: PRODUCT USED FOR UNKNOWN INDICATION
     Dosage: 5 MG, QD
     Route: 065

REACTIONS (16)
  - Musculoskeletal stiffness [Unknown]
  - Peripheral swelling [Unknown]
  - Feeling abnormal [Unknown]
  - Tremor [Unknown]
  - Headache [Unknown]
  - Nightmare [Unknown]
  - Vision blurred [Unknown]
  - Nausea [Unknown]
  - Pyrexia [Unknown]
  - Neck pain [Unknown]
  - Tinnitus [Unknown]
  - Dizziness [Unknown]
  - Malaise [Unknown]
  - Therapy cessation [Recovered/Resolved]
  - Hallucination [Unknown]
  - Eye discharge [Unknown]
